FAERS Safety Report 9499943 (Version 1)
Quarter: 2013Q3

REPORT INFORMATION
  Report Type: Spontaneous
  Country: FR (occurrence: None)
  Receive Date: 20130903
  Receipt Date: 20130903
  Transmission Date: 20140515
  Serious: Yes (Hospitalization)
  Sender: FDA-Public Use
  Company Number: FR-20120196

PATIENT
  Age: 82 Year
  Sex: Female

DRUGS (1)
  1. HEXABRIX 320 (IOXAGLIC ACID) UNKNOWN [Suspect]
     Indication: FACE AND MOUTH X-RAY
     Dosage: 10 ML (10 ML, 1 IN 1 TOTAL)
     Route: 042

REACTIONS (8)
  - Pyramidal tract syndrome [None]
  - Hypertonia [None]
  - Confusional state [None]
  - Nausea [None]
  - Vomiting [None]
  - Somnolence [None]
  - Mucosal dryness [None]
  - Disorientation [None]
